FAERS Safety Report 7340918-3 (Version None)
Quarter: 2011Q1

REPORT INFORMATION
  Report Type: 
  Country: None (occurrence: None)
  Receive Date: 20110309
  Receipt Date: 20100817
  Transmission Date: 20110831
  Serious: No
  Sender: FDA-Public Use
  Company Number: US-ABBOTT-10P-163-0664901-00

PATIENT
  Sex: Female
  Weight: 81.72 kg

DRUGS (3)
  1. SYNTHROID [Concomitant]
     Indication: PRODUCT USED FOR UNKNOWN INDICATION
  2. LUPRON DEPOT [Suspect]
     Indication: UTERINE LEIOMYOMA
     Dates: start: 20100711
  3. EFFEXOR XR [Concomitant]
     Indication: ANXIETY

REACTIONS (2)
  - FATIGUE [None]
  - HEADACHE [None]
